FAERS Safety Report 13094775 (Version 1)
Quarter: 2017Q1

REPORT INFORMATION
  Report Type: Report from Study
  Country: US (occurrence: US)
  Receive Date: 20170106
  Receipt Date: 20170106
  Transmission Date: 20170428
  Serious: Yes (Other)
  Sender: FDA-Public Use
  Company Number: US-PFIZER INC-2017002955

PATIENT
  Sex: Female

DRUGS (3)
  1. PACLITAXEL. [Suspect]
     Active Substance: PACLITAXEL
     Dosage: 135 MG/M2, OVER 3 H ON DAY 1 OF EACH 21 DAY CYCLE WITH 6 CYCLES PLANNED
     Route: 042
  2. PACLITAXEL. [Suspect]
     Active Substance: PACLITAXEL
     Dosage: 60 MG/M2, ON DAY 8 OF A 21 DAY CYCLE WITH 6 CYCLES PLANNED
     Route: 033
  3. CISPLATIN. [Suspect]
     Active Substance: CISPLATIN
     Dosage: 75 MG/M2, ON DAY 1 OF A 21 DAY CYCLE WITH 6 CYCLES PLANNED
     Route: 033

REACTIONS (1)
  - Hyperglycaemia [Unknown]
